FAERS Safety Report 8145464 (Version 10)
Quarter: 2013Q1

REPORT INFORMATION
  Report Type: Report from Study
  Country: AR (occurrence: AR)
  Receive Date: 20110921
  Receipt Date: 20130319
  Transmission Date: 20140127
  Serious: Yes (Other)
  Sender: FDA-Public Use
  Company Number: AR-JNJFOC-20110806325

PATIENT
  Age: 55 Year
  Sex: Female
  Weight: 66 kg

DRUGS (9)
  1. GOLIMUMAB [Suspect]
     Indication: RHEUMATOID ARTHRITIS
     Route: 042
     Dates: start: 20100915
  2. GOLIMUMAB [Suspect]
     Indication: RHEUMATOID ARTHRITIS
     Route: 042
     Dates: start: 20110720
  3. SIMVASTATIN [Concomitant]
     Route: 048
     Dates: start: 20110518
  4. EZETIMIBE [Concomitant]
     Route: 048
     Dates: start: 20110518
  5. PREDNISONE [Concomitant]
     Indication: RHEUMATOID ARTHRITIS
     Route: 048
     Dates: start: 20101210
  6. LEVOFLOXACINE [Concomitant]
     Route: 048
     Dates: start: 20110731
  7. COLECALCIFEROL [Concomitant]
     Indication: OSTEOPOROSIS PROPHYLAXIS
     Route: 048
     Dates: start: 20110720
  8. FOLIC ACID [Concomitant]
     Indication: ANAEMIA PROPHYLAXIS
     Route: 048
     Dates: start: 20100323
  9. PANTOPRAZOLE [Concomitant]
     Indication: GASTRITIS PROPHYLAXIS
     Route: 048

REACTIONS (1)
  - Pulmonary mass [Recovering/Resolving]
